FAERS Safety Report 7693990-5 (Version None)
Quarter: 2011Q3

REPORT INFORMATION
  Report Type: 
  Country: None (occurrence: None)
  Receive Date: 20110819
  Receipt Date: 20110817
  Transmission Date: 20111222
  Serious: Yes (Other)
  Sender: FDA-Public Use
  Company Number: US-AMGEN-USACT2011005038

PATIENT
  Age: 84 Year
  Sex: Female

DRUGS (11)
  1. ROMIPLOSTIM [Suspect]
     Indication: MYELODYSPLASTIC SYNDROME
     Dates: start: 20100127, end: 20101124
  2. ARANESP [Concomitant]
     Dosage: UNK UNK, Q2WK
     Route: 058
     Dates: start: 20070218, end: 20110119
  3. MYLANTA [Concomitant]
  4. BENADRYL [Concomitant]
  5. ZIAK [Concomitant]
  6. PERDIEM [Concomitant]
  7. COMPAZINE [Concomitant]
  8. ZANTAC [Concomitant]
  9. NORCO [Concomitant]
  10. SYNTHROID [Concomitant]
  11. ZYRTEC [Concomitant]

REACTIONS (1)
  - EXTRAMEDULLARY HAEMOPOIESIS [None]
